FAERS Safety Report 9379010 (Version 2)
Quarter: 2014Q1

REPORT INFORMATION
  Report Type: Spontaneous
  Country: TR (occurrence: TR)
  Receive Date: 20130702
  Receipt Date: 20140106
  Transmission Date: 20141002
  Serious: Yes (Hospitalization)
  Sender: FDA-Public Use
  Company Number: TR-RANBAXY-2013R1-70698

PATIENT
  Age: 29 Year
  Sex: Male

DRUGS (2)
  1. AMOXICILLIN/CLAVULANIC ACID [Suspect]
     Indication: UPPER RESPIRATORY TRACT INFECTION
     Dosage: 1G
     Route: 048
  2. AMPICILLIN/SULBACTAM [Suspect]
     Indication: UPPER RESPIRATORY TRACT INFECTION
     Dosage: 1G
     Route: 030

REACTIONS (1)
  - Kounis syndrome [Recovered/Resolved]
